FAERS Safety Report 7136277 (Version 11)
Quarter: 2014Q4

REPORT INFORMATION
  Report Type: Spontaneous
  Country: JP (occurrence: JP)
  Receive Date: 20091001
  Receipt Date: 20141218
  Transmission Date: 20150529
  Serious: Yes (Death, Other)
  Sender: FDA-Public Use
  Company Number: JP-BAYER-200913556BYL

PATIENT
  Age: 59 Year
  Sex: Male

DRUGS (2)
  1. NEXAVAR [Suspect]
     Active Substance: SORAFENIB
     Indication: HEPATOCELLULAR CARCINOMA
     Dosage: 800 MG, QD
     Route: 048
     Dates: start: 20090918, end: 200909
  2. NEXAVAR [Suspect]
     Active Substance: SORAFENIB
     Indication: HEPATOCELLULAR CARCINOMA
     Dosage: 200 MG, BID
     Route: 048
     Dates: start: 20090922, end: 20091001

REACTIONS (10)
  - Prothrombin level increased [Unknown]
  - Hepatic function abnormal [Not Recovered/Not Resolved]
  - Hepatocellular carcinoma [Fatal]
  - Asterixis [Recovered/Resolved]
  - Blood pressure increased [None]
  - Hyperammonaemia [Recovered/Resolved]
  - Palmar-plantar erythrodysaesthesia syndrome [Recovered/Resolved]
  - Hepatic encephalopathy [Recovered/Resolved]
  - Altered state of consciousness [Recovered/Resolved]
  - Decreased appetite [None]

NARRATIVE: CASE EVENT DATE: 200909
